FAERS Safety Report 6707719-8 (Version None)
Quarter: 2010Q2

REPORT INFORMATION
  Report Type: 
  Country: None (occurrence: None)
  Receive Date: 20100503
  Receipt Date: 20090427
  Transmission Date: 20101027
  Serious: No
  Sender: FDA-Public Use
  Company Number: US-ASTRAZENECA-2009UW07616

PATIENT
  Age: 844 Month
  Sex: Male
  Weight: 75.3 kg

DRUGS (4)
  1. NEXIUM [Suspect]
     Indication: GASTROOESOPHAGEAL REFLUX DISEASE
     Route: 048
     Dates: start: 20080101
  2. ZOCOR [Concomitant]
  3. ASPIRIN [Concomitant]
  4. METOPROLOL [Concomitant]

REACTIONS (2)
  - COUNTERFEIT DRUG ADMINISTERED [None]
  - NAUSEA [None]
